FAERS Safety Report 9522604 (Version 2)
Quarter: 2013Q4

REPORT INFORMATION
  Report Type: Report from Study
  Country: US (occurrence: US)
  Receive Date: 20130913
  Receipt Date: 20131022
  Transmission Date: 20140711
  Serious: Yes (Death, Other)
  Sender: FDA-Public Use
  Company Number: US-ROCHE-1269973

PATIENT
  Age: 51 Year
  Sex: Female
  Weight: 62.15 kg

DRUGS (19)
  1. HERCEPTIN [Suspect]
     Indication: BREAST CANCER
     Dosage: WITH CARBOPLATIN
     Route: 065
     Dates: start: 20110325
  2. HERCEPTIN [Suspect]
     Route: 065
     Dates: start: 201106
  3. HERCEPTIN [Suspect]
     Route: 065
     Dates: start: 201202
  4. HERCEPTIN [Suspect]
     Dosage: 2 DOSES WITH DOCETAXEL
     Route: 065
  5. PERJETA [Suspect]
     Indication: BREAST CANCER
     Route: 065
  6. CAPECITABINE [Concomitant]
     Indication: BREAST CANCER
     Route: 065
     Dates: start: 20110825
  7. CAPECITABINE [Concomitant]
     Route: 065
     Dates: start: 201111
  8. CAPECITABINE [Concomitant]
     Dosage: LATER DROPPED
     Route: 065
     Dates: start: 201201
  9. NAVELBINE [Concomitant]
     Indication: BREAST CANCER METASTATIC
  10. LAPATINIB [Concomitant]
     Indication: METASTATIC NEOPLASM
  11. TAXOL [Concomitant]
     Indication: METASTATIC NEOPLASM
  12. CARBOPLATIN [Concomitant]
     Route: 065
     Dates: start: 20110325
  13. ADRIAMYCIN [Concomitant]
     Route: 065
     Dates: start: 201110
  14. ERIBULIN [Concomitant]
     Route: 065
     Dates: start: 201106
  15. IXEMPRA [Concomitant]
     Route: 065
     Dates: start: 201201
  16. SYMBICORT [Concomitant]
     Indication: ASTHMA
     Dosage: 2 PUUF/DAY
     Route: 065
  17. PREDNISONE [Concomitant]
     Route: 065
  18. GEMCITABINE [Concomitant]
     Route: 065
     Dates: start: 201202
  19. TAXOTERE [Concomitant]

REACTIONS (17)
  - Death [Fatal]
  - Convulsion [Unknown]
  - Metastases to chest wall [Unknown]
  - Metastases to central nervous system [Unknown]
  - Meningioma [Unknown]
  - Disease progression [Unknown]
  - Pleural effusion [Unknown]
  - Breast mass [Unknown]
  - Osteosclerosis [Unknown]
  - Metastases to bone [Unknown]
  - Skin mass [Unknown]
  - Skin ulcer [Unknown]
  - Fatigue [Unknown]
  - Cough [Unknown]
  - Dyspnoea [Unknown]
  - Muscular weakness [Unknown]
  - Oedema peripheral [Unknown]
